FAERS Safety Report 23785849 (Version 1)
Quarter: 2024Q2

REPORT INFORMATION
  Report Type: Report from Study
  Country: US (occurrence: US)
  Receive Date: 20240425
  Receipt Date: 20240425
  Transmission Date: 20240715
  Serious: Yes (Hospitalization, Other)
  Sender: FDA-Public Use
  Company Number: US-ABBVIE-5731355

PATIENT
  Age: 73 Year
  Sex: Male

DRUGS (1)
  1. SKYRIZI [Suspect]
     Active Substance: RISANKIZUMAB-RZAA
     Indication: Psoriasis
     Route: 058
     Dates: start: 20230406

REACTIONS (6)
  - Pulmonary oedema [Recovered/Resolved]
  - Cellulitis [Recovered/Resolved]
  - Blood glucose increased [Recovered/Resolved]
  - Chronic obstructive pulmonary disease [Recovering/Resolving]
  - Weight decreased [Unknown]
  - Cardiac failure congestive [Unknown]

NARRATIVE: CASE EVENT DATE: 20240416
